FAERS Safety Report 20730510 (Version 1)
Quarter: 2022Q2

REPORT INFORMATION
  Report Type: Spontaneous
  Country: US (occurrence: None)
  Receive Date: 20220419
  Receipt Date: 20220419
  Transmission Date: 20220720
  Serious: No
  Sender: FDA-Public Use
  Company Number: None

PATIENT
  Age: 38 Year
  Sex: Female
  Weight: 58.5 kg

DRUGS (23)
  1. QULIPTA [Suspect]
     Active Substance: ATOGEPANT
     Indication: Migraine
     Dosage: OTHER QUANTITY : 1 TABLET(S);?FREQUENCY : DAILY;?
     Route: 048
     Dates: start: 20211222
  2. Rizariptan [Concomitant]
  3. TIZANIDINE [Concomitant]
     Active Substance: TIZANIDINE
  4. ADDERALL [Concomitant]
     Active Substance: AMPHETAMINE ASPARTATE\AMPHETAMINE SULFATE\DEXTROAMPHETAMINE SACCHARATE\DEXTROAMPHETAMINE SULFATE
  5. AMBIEN [Concomitant]
     Active Substance: ZOLPIDEM TARTRATE
  6. Allergy drops [Concomitant]
  7. ZYRTEC [Concomitant]
     Active Substance: CETIRIZINE HYDROCHLORIDE
  8. CLARITIN [Concomitant]
     Active Substance: LORATADINE
  9. BENADRYL [Concomitant]
     Active Substance: DIPHENHYDRAMINE HYDROCHLORIDE
  10. Sdafed [Concomitant]
  11. Heme Iron [Concomitant]
  12. MAGNESIUM GLYCINATE [Concomitant]
     Active Substance: MAGNESIUM GLYCINATE
  13. MAGNESIUM MALATE [Concomitant]
     Active Substance: MAGNESIUM MALATE
  14. COENZYME Q10 [Concomitant]
     Active Substance: DIETARY SUPPLEMENT\UBIDECARENONE
  15. Butterbur [Concomitant]
  16. VITAMIN B COMPLEX [Concomitant]
     Active Substance: CYANOCOBALAMIN\DEXPANTHENOL\NIACINAMIDE\PYRIDOXINE HYDROCHLORIDE\RIBOFLAVIN 5^-PHOSPHATE SODIUM\THIA
  17. BIOTIN [Concomitant]
     Active Substance: BIOTIN
  18. VITAMIN D [Concomitant]
     Active Substance: VITAMIN D NOS
  19. DIMETHYL SULFONE [Concomitant]
     Active Substance: DIMETHYL SULFONE
  20. GABA [Concomitant]
     Active Substance: HOMEOPATHICS
  21. ADVIL [Concomitant]
     Active Substance: IBUPROFEN
  22. ALEVE [Concomitant]
     Active Substance: NAPROXEN SODIUM
  23. ACETAMINOPHEN [Concomitant]
     Active Substance: ACETAMINOPHEN

REACTIONS (5)
  - Attention deficit hyperactivity disorder [None]
  - Condition aggravated [None]
  - Feeling abnormal [None]
  - Memory impairment [None]
  - Aphasia [None]
